FAERS Safety Report 17576629 (Version 2)
Quarter: 2020Q2

REPORT INFORMATION
  Report Type: Other
  Country: US (occurrence: US)
  Receive Date: 20200324
  Receipt Date: 20200622
  Transmission Date: 20200713
  Serious: Yes (Hospitalization, Disabling)
  Sender: FDA-Public Use
  Company Number: US-ACORDA-ACO_163440_2020

PATIENT
  Age: 66 Year
  Sex: Male

DRUGS (3)
  1. INBRIJA [Suspect]
     Active Substance: LEVODOPA
     Indication: PARKINSON^S DISEASE
     Dosage: 84 MILLIGRAM, PRN
     Dates: start: 20191018
  2. INBRIJA [Suspect]
     Active Substance: LEVODOPA
     Indication: ON AND OFF PHENOMENON
  3. RYTARY [Suspect]
     Active Substance: CARBIDOPA\LEVODOPA
     Indication: PRODUCT USED FOR UNKNOWN INDICATION
     Dosage: UNK
     Route: 065

REACTIONS (9)
  - Back pain [Not Recovered/Not Resolved]
  - Drug ineffective [Unknown]
  - Incorrect dose administered [Unknown]
  - Gait inability [Unknown]
  - Spinal operation [Unknown]
  - Peripheral swelling [Not Recovered/Not Resolved]
  - Product communication issue [Unknown]
  - Fall [Unknown]
  - Ill-defined disorder [Unknown]

NARRATIVE: CASE EVENT DATE: 201912
